FAERS Safety Report 9166778 (Version 1)
Quarter: 2012Q4

REPORT INFORMATION
  Report Type: 
  Country: US (occurrence: US)
  Receive Date: 20121120
  Receipt Date: 20121120
  Transmission Date: 20130627
  Serious: Yes (Other)
  Sender: FDA-Public Use
  Company Number: US-RB-046696-12

PATIENT
  Age: 76 Year
  Sex: Female

DRUGS (2)
  1. SUBOXONE TABLETS [Suspect]
     Indication: DRUG DEPENDENCE
     Route: 060
     Dates: start: 201205, end: 201209
  2. SUBOXONE TABLETS [Suspect]
     Route: 060
     Dates: start: 201209

REACTIONS (1)
  - Atrial fibrillation [Not Recovered/Not Resolved]
